FAERS Safety Report 16120224 (Version 1)
Quarter: 2019Q1

REPORT INFORMATION
  Report Type: Spontaneous
  Country: JP (occurrence: JP)
  Receive Date: 20190326
  Receipt Date: 20190326
  Transmission Date: 20190418
  Serious: Yes (Other)
  Sender: FDA-Public Use
  Company Number: JP-SHIRE-JP201909009AA

PATIENT
  Age: 65 Year
  Sex: Female

DRUGS (5)
  1. AGRYLIN [Suspect]
     Active Substance: ANAGRELIDE HYDROCHLORIDE
     Dosage: UNK UNK, UNKNOWN
     Route: 048
  2. HYDROXYCARBAMIDE [Concomitant]
     Active Substance: HYDROXYUREA
     Dosage: 500 MILLIGRAM, UNKNOWN
     Dates: start: 201712
  3. HYDROXYCARBAMIDE [Concomitant]
     Active Substance: HYDROXYUREA
     Indication: ESSENTIAL THROMBOCYTHAEMIA
     Dosage: 500 MILLIGRAM, UNKNOWN
     Route: 065
     Dates: start: 20140116
  4. AGRYLIN [Suspect]
     Active Substance: ANAGRELIDE HYDROCHLORIDE
     Dosage: 2 MILLIGRAM, UNKNOWN
     Route: 048
     Dates: start: 201612
  5. AGRYLIN [Suspect]
     Active Substance: ANAGRELIDE HYDROCHLORIDE
     Indication: ESSENTIAL THROMBOCYTHAEMIA
     Dosage: 1 MILLIGRAM, UNKNOWN
     Route: 048
     Dates: start: 201610, end: 201612

REACTIONS (1)
  - Dementia [Unknown]
